FAERS Safety Report 20590136 (Version 1)
Quarter: 2022Q1

REPORT INFORMATION
  Report Type: Spontaneous
  Country: US (occurrence: None)
  Receive Date: 20220312
  Receipt Date: 20220312
  Transmission Date: 20220423
  Serious: Yes (Other)
  Sender: FDA-Public Use
  Company Number: None

PATIENT
  Age: 46 Year
  Sex: Female
  Weight: 81 kg

DRUGS (1)
  1. AJOVY [Suspect]
     Active Substance: FREMANEZUMAB-VFRM
     Indication: Migraine prophylaxis
     Dosage: OTHER QUANTITY : 1 INJECTION(S);?OTHER FREQUENCY : 1 X MONTH;?
     Route: 058

REACTIONS (8)
  - Injection site pruritus [None]
  - Injection site discomfort [None]
  - Sleep disorder [None]
  - Injection site swelling [None]
  - Injection site erythema [None]
  - Taste disorder [None]
  - Dry mouth [None]
  - Urticaria [None]

NARRATIVE: CASE EVENT DATE: 20220311
